FAERS Safety Report 5153975-X (Version None)
Quarter: 2006Q4

REPORT INFORMATION
  Report Type: 
  Country: None (occurrence: None)
  Receive Date: 20061120
  Receipt Date: 20061107
  Transmission Date: 20070319
  Serious: Yes (Hospitalization)
  Sender: FDA-Public Use
  Company Number: HU-ROCHE-470276

PATIENT
  Age: 41 Year
  Sex: Male

DRUGS (9)
  1. CELLCEPT [Suspect]
     Route: 065
     Dates: start: 20050406
  2. FK506 [Suspect]
     Route: 048
     Dates: start: 20050406
  3. PREDNISONE TAB [Suspect]
     Route: 065
     Dates: start: 20050406
  4. FUROSEMIDE [Concomitant]
  5. NORMODIPINE [Concomitant]
  6. BENZYLPENICILLIN [Concomitant]
     Dosage: REPORTED AS SERVIPEN-G.
  7. MILURIT [Concomitant]
  8. ASPIRIN [Concomitant]
  9. LOKREN [Concomitant]

REACTIONS (3)
  - BODY TEMPERATURE INCREASED [None]
  - COMPLICATIONS OF TRANSPLANTED KIDNEY [None]
  - PHARYNGOLARYNGEAL PAIN [None]
